FAERS Safety Report 5765922-8 (Version None)
Quarter: 2008Q2

REPORT INFORMATION
  Report Type: 
  Country: None (occurrence: None)
  Receive Date: 20080611
  Receipt Date: 20070612
  Transmission Date: 20081010
  Serious: No
  Sender: FDA-Public Use
  Company Number: US-BRISTOL-MYERS SQUIBB COMPANY-13835319

PATIENT
  Age: 39 Year
  Sex: Female

DRUGS (2)
  1. SINEMET [Suspect]
  2. PROPRANOLOL HYDROCHLORIDE [Interacting]

REACTIONS (2)
  - DRUG INTERACTION [None]
  - DYSPNOEA [None]
